FAERS Safety Report 8486925-9 (Version None)
Quarter: 2012Q3

REPORT INFORMATION
  Report Type: 
  Country: None (occurrence: None)
  Receive Date: 20120704
  Receipt Date: 20120627
  Transmission Date: 20120928
  Serious: Yes (Hospitalization)
  Sender: FDA-Public Use
  Company Number: AT-AMGEN-AUTCT2012039826

PATIENT
  Age: 79 Year
  Sex: Female

DRUGS (2)
  1. DENOSUMAB [Suspect]
     Indication: BONE DENSITY DECREASED
     Dosage: 60 MG, UNK
     Dates: start: 20090512
  2. FEMARA [Concomitant]
     Dosage: 2.5 MG, QD
     Dates: start: 20080227

REACTIONS (1)
  - GENERAL PHYSICAL HEALTH DETERIORATION [None]
